FAERS Safety Report 13089424 (Version 3)
Quarter: 2017Q3

REPORT INFORMATION
  Report Type: Spontaneous
  Country: US (occurrence: US)
  Receive Date: 20170105
  Receipt Date: 20170821
  Transmission Date: 20171127
  Serious: No
  Sender: FDA-Public Use
  Company Number: US-PFIZER INC-2016598246

PATIENT
  Age: 63 Year
  Sex: Female

DRUGS (1)
  1. IBRANCE [Suspect]
     Active Substance: PALBOCICLIB
     Indication: NEOPLASM MALIGNANT
     Dosage: 125 MG, CYCLIC (TAKE 1 CAPSULE DAILY FOR 21 DAYS AND STOP 7 DAY)
     Route: 048
     Dates: start: 201610

REACTIONS (11)
  - Fracture [Unknown]
  - Dry skin [Unknown]
  - Hot flush [Unknown]
  - Bone pain [Unknown]
  - Pain of skin [Unknown]
  - Myalgia [Unknown]
  - Pruritus [Unknown]
  - Limb injury [Unknown]
  - Skin disorder [Unknown]
  - Fall [Unknown]
  - Rash [Unknown]
